FAERS Safety Report 13245777 (Version 7)
Quarter: 2019Q1

REPORT INFORMATION
  Report Type: Report from Study
  Country: US (occurrence: US)
  Receive Date: 20170217
  Receipt Date: 20190321
  Transmission Date: 20190417
  Serious: Yes (Death, Other)
  Sender: FDA-Public Use
  Company Number: US-ROCHE-1893652

PATIENT

DRUGS (2)
  1. RITUXIMAB. [Suspect]
     Active Substance: RITUXIMAB
     Indication: CHRONIC LYMPHOCYTIC LEUKAEMIA
     Dosage: EVERY 28 DAYS FOR 12 CYCLES
     Route: 042
  2. LENALIDOMIDE [Suspect]
     Active Substance: LENALIDOMIDE
     Indication: CHRONIC LYMPHOCYTIC LEUKAEMIA
     Dosage: ON DAY 9 OF CYCLE 1
     Route: 048

REACTIONS (7)
  - Infection [Fatal]
  - Embolism [Unknown]
  - Neutropenia [Unknown]
  - Rash [Unknown]
  - Anaemia [Unknown]
  - Thrombocytopenia [Unknown]
  - Tumour flare [Unknown]
